FAERS Safety Report 4346176-6 (Version None)
Quarter: 2004Q2

REPORT INFORMATION
  Report Type: 
  Country: None (occurrence: None)
  Receive Date: 20040426
  Receipt Date: 20040414
  Transmission Date: 20050107
  Serious: Yes (Hospitalization)
  Sender: FDA-Public Use
  Company Number: US-BRISTOL-MYERS SQUIBB COMPANY-12560397

PATIENT
  Age: 12 Year
  Sex: Female

DRUGS (1)
  1. ABILIFY [Suspect]
     Indication: AUTISM
     Route: 048

REACTIONS (5)
  - AUTISTIC DISORDER [None]
  - DEHYDRATION [None]
  - DYSPHAGIA [None]
  - MUSCLE RIGIDITY [None]
  - PYREXIA [None]
